FAERS Safety Report 23090854 (Version 1)
Quarter: 2023Q4

REPORT INFORMATION
  Report Type: Spontaneous
  Country: NL (occurrence: NL)
  Receive Date: 20231020
  Receipt Date: 20231020
  Transmission Date: 20240110
  Serious: Yes (Hospitalization)
  Sender: FDA-Public Use
  Company Number: NL-LRB-00892692

PATIENT
  Sex: Female
  Weight: 62 kg

DRUGS (3)
  1. PREGABALIN [Suspect]
     Active Substance: PREGABALIN
     Indication: Nerve compression
     Dosage: 75 MILLIGRAM, DAILY
     Route: 065
     Dates: start: 20230501, end: 20230608
  2. TRAMADOL [Suspect]
     Active Substance: TRAMADOL\TRAMADOL HYDROCHLORIDE
     Indication: Hernia pain
     Dosage: 50 MILLIGRAM, TID
     Route: 065
     Dates: start: 20230420
  3. ACETAMINOPHEN\ASPIRIN [Concomitant]
     Active Substance: ACETAMINOPHEN\ASPIRIN
     Indication: Product used for unknown indication
     Dosage: 2 DOSAGE FORM, TID, 500 MG
     Route: 065

REACTIONS (6)
  - Vomiting [Recovered/Resolved]
  - Nausea [Recovered/Resolved]
  - Dysgeusia [Not Recovered/Not Resolved]
  - Taste disorder [Recovering/Resolving]
  - Headache [Recovering/Resolving]
  - Palpitations [Recovering/Resolving]
